FAERS Safety Report 4288766-5 (Version None)
Quarter: 2004Q1

REPORT INFORMATION
  Report Type: 
  Country: None (occurrence: None)
  Receive Date: 20040204
  Receipt Date: 20040122
  Transmission Date: 20041129
  Serious: Yes (Hospitalization, Other)
  Sender: FDA-Public Use
  Company Number: HQWYE539123JAN04

PATIENT
  Age: 29 Month
  Sex: Male

DRUGS (2)
  1. CHILDREN'S ADVIL [Suspect]
     Indication: PYREXIA
     Dosage: 130 MG X 4/D
     Route: 048
     Dates: start: 20011027, end: 20011103
  2. CEFPODOXIME PROXETIL [Concomitant]

REACTIONS (3)
  - RETROPHARYNGEAL ABSCESS [None]
  - TORTICOLLIS [None]
  - TOXOPLASMOSIS [None]
